FAERS Safety Report 9704520 (Version 1)
Quarter: 2013Q4

REPORT INFORMATION
  Report Type: Report from Study
  Country: AU (occurrence: AU)
  Receive Date: 20131122
  Receipt Date: 20131122
  Transmission Date: 20140711
  Serious: Yes (Other)
  Sender: FDA-Public Use
  Company Number: AU-ROCHE-1302941

PATIENT
  Sex: 0

DRUGS (2)
  1. RANIBIZUMAB [Suspect]
     Indication: AGE-RELATED MACULAR DEGENERATION
     Route: 065
  2. BEVACIZUMAB [Suspect]
     Indication: AGE-RELATED MACULAR DEGENERATION
     Route: 065

REACTIONS (6)
  - Endophthalmitis [Unknown]
  - Non-infectious endophthalmitis [Unknown]
  - Cataract [Unknown]
  - Retinal detachment [Unknown]
  - Retinal pigment epithelial tear [Unknown]
  - Pain [Unknown]
